FAERS Safety Report 18344749 (Version 2)
Quarter: 2020Q4

REPORT INFORMATION
  Report Type: Report from Study
  Country: ES (occurrence: ES)
  Receive Date: 20201005
  Receipt Date: 20201016
  Transmission Date: 20210114
  Serious: Yes (Death)
  Sender: FDA-Public Use
  Company Number: ES-PFIZER INC-2020379912

PATIENT

DRUGS (6)
  1. CALCIUM FOLINATE [Suspect]
     Active Substance: LEUCOVORIN CALCIUM
     Indication: PANCREATIC CARCINOMA METASTATIC
     Dosage: 400 MG/M2, CYCLIC
     Route: 042
  2. GEMCITABINE HYDROCHLORIDE. [Suspect]
     Active Substance: GEMCITABINE HYDROCHLORIDE
     Indication: PANCREATIC CARCINOMA METASTATIC
     Dosage: 1000 MG/M2, CYCLIC (ON DAYS 1, 8 AND 15 OF EACH 42-DAY CYCLE DOSE LEVEL)
     Route: 042
  3. 5-FU [Suspect]
     Active Substance: FLUOROURACIL
     Indication: PANCREATIC CARCINOMA METASTATIC
     Dosage: 400 MG/M2, CYCLIC (BOLUS, ON DAY 29 EACH 42-DAY CYCLE DOSE LEVEL)
     Route: 040
  4. 5-FU [Suspect]
     Active Substance: FLUOROURACIL
     Dosage: 2400 MG/M2, CYCLIC (INFUSION, OVER 46 H)
  5. OXALIPLATIN. [Suspect]
     Active Substance: OXALIPLATIN
     Indication: PANCREATIC CARCINOMA METASTATIC
     Dosage: 85 MG/M2, CYCLIC (ON DAY 29 EACH 42-DAY CYCLE DOSE LEVEL) (120-MIN IV OXALIPLATIN INFUSION)
     Route: 042
  6. NAB-PACLITAXEL [Suspect]
     Active Substance: PACLITAXEL
     Indication: PANCREATIC CARCINOMA METASTATIC
     Dosage: 125 MG/M2, CYCLIC (30-MIN IV INFUSION) (ON DAYS 1, 8 AND 15 OF EACH 42-DAY CYCLE DOSE LEVEL)

REACTIONS (1)
  - Upper gastrointestinal haemorrhage [Fatal]
